FAERS Safety Report 9235610 (Version 2)
Quarter: 2013Q2

REPORT INFORMATION
  Report Type: Spontaneous
  Country: US (occurrence: None)
  Receive Date: 20121031
  Receipt Date: 20130107
  Transmission Date: 20140414
  Serious: Yes (Other)
  Sender: FDA-Public Use
  Company Number: PHEH2012US016939

PATIENT
  Age: 38 Year
  Sex: Female

DRUGS (1)
  1. GILENYA (FTY) CAPSULE, 0.5MG [Suspect]
     Indication: MULTIPLE SCLEROSIS
     Dosage: 0.5MG, DAILY, ORAL
     Route: 048
     Dates: start: 201208

REACTIONS (4)
  - Drop attacks [None]
  - Muscle spasms [None]
  - Urinary tract infection [None]
  - Diarrhoea [None]
